FAERS Safety Report 4282905-8 (Version None)
Quarter: 2004Q1

REPORT INFORMATION
  Report Type: 
  Country: None (occurrence: None)
  Receive Date: 20040130
  Receipt Date: 20031021
  Transmission Date: 20041129
  Serious: Yes (Disabling)
  Sender: FDA-Public Use
  Company Number: US-BRISTOL-MYERS SQUIBB COMPANY-12418596

PATIENT
  Age: 58 Year
  Sex: Male

DRUGS (2)
  1. SERZONE [Suspect]
     Indication: DEPRESSION
     Dates: start: 20000808
  2. EFFEXOR [Concomitant]
     Dates: end: 20000829

REACTIONS (1)
  - NEUROPATHY PERIPHERAL [None]
